FAERS Safety Report 18072626 (Version 1)
Quarter: 2020Q3

REPORT INFORMATION
  Report Type: Spontaneous
  Country: US (occurrence: US)
  Receive Date: 20200727
  Receipt Date: 20200727
  Transmission Date: 20201103
  Serious: No
  Sender: FDA-Public Use
  Company Number: US-ACCORD-136254

PATIENT
  Age: 59 Year
  Sex: Female
  Weight: 74.84 kg

DRUGS (1)
  1. LETROZOLE ACCORD [Suspect]
     Active Substance: LETROZOLE
     Indication: BREAST CANCER
     Dosage: 2.5MG/ORAL/ONCE
     Route: 048
     Dates: start: 20190420

REACTIONS (3)
  - Arthralgia [Not Recovered/Not Resolved]
  - Product substitution issue [Unknown]
  - Musculoskeletal stiffness [Not Recovered/Not Resolved]
